FAERS Safety Report 23713922 (Version 1)
Quarter: 2024Q2

REPORT INFORMATION
  Report Type: Spontaneous
  Country: RO (occurrence: RO)
  Receive Date: 20240405
  Receipt Date: 20240405
  Transmission Date: 20240716
  Serious: Yes (Other)
  Sender: FDA-Public Use
  Company Number: RO-Merck Healthcare KGaA-2024017399

PATIENT
  Age: 58 Year
  Sex: Male

DRUGS (2)
  1. ERBITUX [Suspect]
     Active Substance: CETUXIMAB
     Indication: Rectal adenocarcinoma
     Dosage: 500 MG/M2, UNK
     Route: 065
     Dates: start: 202107, end: 202110
  2. ERBITUX [Suspect]
     Active Substance: CETUXIMAB
     Dosage: 500 MG/M2, UNK
     Route: 065
     Dates: start: 202207

REACTIONS (5)
  - Neuropathy peripheral [Unknown]
  - Tremor [Recovering/Resolving]
  - Off label use [Unknown]
  - Magnesium deficiency [Recovering/Resolving]
  - Dermatitis acneiform [Recovering/Resolving]
